FAERS Safety Report 17190562 (Version 1)
Quarter: 2019Q4

REPORT INFORMATION
  Report Type: Other
  Country: DE (occurrence: DE)
  Receive Date: 20191223
  Receipt Date: 20191223
  Transmission Date: 20200122
  Serious: Yes (Death, Hospitalization)
  Sender: FDA-Public Use
  Company Number: DE-DEXPHARM-20191183

PATIENT
  Age: 33 Year
  Sex: Male

DRUGS (6)
  1. NORDOXEPIN [Suspect]
     Active Substance: DESMETHYLDOXEPIN
  2. DOXEPIN [Suspect]
     Active Substance: DOXEPIN
  3. N-ETHYLHEXEDRONE [Suspect]
     Active Substance: N-ETHYLHEXEDRONE
  4. U-47700 [Suspect]
     Active Substance: U-47700
  5. N-DESMETHYLVENLAFAXINE [Suspect]
     Active Substance: N-DESMETHYLVENLAFAXINE
  6. VENLAFAXINE [Suspect]
     Active Substance: VENLAFAXINE HYDROCHLORIDE

REACTIONS (4)
  - Pulmonary haemorrhage [Fatal]
  - Toxicity to various agents [Fatal]
  - Intracranial pressure increased [Fatal]
  - Pulmonary oedema [Fatal]
